FAERS Safety Report 19087618 (Version 9)
Quarter: 2022Q4

REPORT INFORMATION
  Report Type: Report from Study
  Country: US (occurrence: US)
  Receive Date: 20210402
  Receipt Date: 20221027
  Transmission Date: 20230113
  Serious: Yes (Hospitalization, Other)
  Sender: FDA-Public Use
  Company Number: US-SHIRE-US201915280

PATIENT
  Age: 66 Year
  Sex: Male

DRUGS (2)
  1. HUMAN IMMUNOGLOBULIN G\HYALURONIDASE RECOMBINANT HUMAN [Suspect]
     Active Substance: HUMAN IMMUNOGLOBULIN G\HYALURONIDASE RECOMBINANT HUMAN
     Indication: Immunodeficiency common variable
     Dosage: 35 GRAM, Q4WEEKS
     Route: 065
  2. FLOMAX [Suspect]
     Active Substance: TAMSULOSIN HYDROCHLORIDE
     Indication: Product used for unknown indication
     Route: 065

REACTIONS (21)
  - Cataract [Unknown]
  - Chronic obstructive pulmonary disease [Unknown]
  - Oxygen saturation decreased [Unknown]
  - Dyspnoea [Unknown]
  - Multiple allergies [Unknown]
  - Respiratory disorder [Unknown]
  - Mycobacterium avium complex infection [Recovered/Resolved]
  - Glaucoma [Unknown]
  - Chest injury [Unknown]
  - Diplopia [Unknown]
  - Anxiety disorder [Unknown]
  - Sensitivity to weather change [Unknown]
  - Abdominal distension [Unknown]
  - Injection site pain [Unknown]
  - Joint injury [Unknown]
  - Fall [Unknown]
  - Head discomfort [Unknown]
  - Dyspnoea [Unknown]
  - Gastrooesophageal reflux disease [Unknown]
  - Arthropathy [Unknown]
  - Dizziness [Unknown]

NARRATIVE: CASE EVENT DATE: 20181201
